FAERS Safety Report 24707535 (Version 1)
Quarter: 2024Q4

REPORT INFORMATION
  Report Type: Spontaneous
  Country: US (occurrence: None)
  Receive Date: 20241206
  Receipt Date: 20241206
  Transmission Date: 20250114
  Serious: Yes (Disabling)
  Sender: Public
  Company Number: None

PATIENT
  Age: 69 Year
  Sex: Female
  Weight: 48.15 kg

DRUGS (8)
  1. PROLIA [Suspect]
     Active Substance: DENOSUMAB
     Indication: Osteoporosis
     Dosage: OTHER FREQUENCY : EVERY 6 MONTHS;?
     Route: 030
     Dates: start: 20140606, end: 20240717
  2. WELLBUTRIN [Concomitant]
     Active Substance: BUPROPION HYDROCHLORIDE
  3. ZOLOFT [Concomitant]
     Active Substance: SERTRALINE HYDROCHLORIDE
  4. MEMANTINE [Concomitant]
     Active Substance: MEMANTINE
  5. UBRELVY [Concomitant]
     Active Substance: UBROGEPANT
  6. FIBER THERAPY (CALCIUM POLYCARBOPHIL) [Concomitant]
     Active Substance: CALCIUM POLYCARBOPHIL
  7. CALCIUM [Concomitant]
     Active Substance: CALCIUM
  8. VITAMINS [Concomitant]
     Active Substance: VITAMINS

REACTIONS (6)
  - Osteonecrosis [None]
  - Staphylococcal infection [None]
  - Spinal cord infection [None]
  - Postoperative wound infection [None]
  - Impaired healing [None]
  - Stomatitis [None]

NARRATIVE: CASE EVENT DATE: 20240321
